FAERS Safety Report 9165960 (Version 2)
Quarter: 2013Q2

REPORT INFORMATION
  Report Type: Spontaneous
  Country: FR (occurrence: FR)
  Receive Date: 20130315
  Receipt Date: 20130516
  Transmission Date: 20140414
  Serious: Yes (Hospitalization)
  Sender: FDA-Public Use
  Company Number: FR-EISAI INC-E2090-02554-SPO-FR

PATIENT
  Age: 27 Year
  Sex: Male

DRUGS (3)
  1. ZONEGRAN [Suspect]
     Indication: EPILEPSY
     Route: 048
     Dates: start: 20130122, end: 20130214
  2. ZEBINIX [Concomitant]
     Indication: EPILEPSY
     Dosage: 1200 MG DAILY
     Route: 048
     Dates: start: 20120703
  3. KEPPRA [Concomitant]
     Indication: EPILEPSY
     Dosage: 3 G DAILY
     Route: 048
     Dates: start: 20040916

REACTIONS (5)
  - Hallucination, visual [Recovered/Resolved]
  - Abnormal behaviour [Recovered/Resolved]
  - Aggression [Recovered/Resolved]
  - Confusional state [Recovered/Resolved]
  - Weight decreased [Recovering/Resolving]
